FAERS Safety Report 21749365 (Version 1)
Quarter: 2022Q4

REPORT INFORMATION
  Report Type: Spontaneous
  Country: US (occurrence: None)
  Receive Date: 20221217
  Receipt Date: 20221217
  Transmission Date: 20230112
  Serious: Yes (Other)
  Sender: FDA-Public Use
  Company Number: None

PATIENT
  Sex: Female

DRUGS (7)
  1. HUMIRA [Suspect]
     Active Substance: ADALIMUMAB
     Indication: Rheumatoid arthritis
     Route: 058
     Dates: start: 20190320
  2. ALLEGRA ALRG [Concomitant]
  3. AZELASTINE SPR [Concomitant]
  4. FLOVENT HFA AER [Concomitant]
  5. LISINOPRIL [Concomitant]
     Active Substance: LISINOPRIL
  6. PLAQUENIL [Concomitant]
     Active Substance: HYDROXYCHLOROQUINE SULFATE
  7. SULFASALAZINE [Concomitant]
     Active Substance: SULFASALAZINE

REACTIONS (2)
  - Rheumatoid arthritis [None]
  - Pain [None]
